FAERS Safety Report 18900330 (Version 2)
Quarter: 2021Q2

REPORT INFORMATION
  Report Type: Spontaneous
  Country: US (occurrence: US)
  Receive Date: 20210216
  Receipt Date: 20210623
  Transmission Date: 20210717
  Serious: Yes (Other)
  Sender: FDA-Public Use
  Company Number: US-SA-2021SA051057

PATIENT
  Sex: Female

DRUGS (1)
  1. AUBAGIO [Suspect]
     Active Substance: TERIFLUNOMIDE
     Indication: MULTIPLE SCLEROSIS
     Dosage: 14 MG, QD
     Route: 048
     Dates: start: 20201126

REACTIONS (5)
  - Weight decreased [Not Recovered/Not Resolved]
  - Malaise [Unknown]
  - Hepatic pain [Not Recovered/Not Resolved]
  - Multiple sclerosis relapse [Unknown]
  - Liver function test increased [Not Recovered/Not Resolved]
